FAERS Safety Report 18606267 (Version 2)
Quarter: 2021Q1

REPORT INFORMATION
  Report Type: Report from Study
  Country: US (occurrence: US)
  Receive Date: 20201211
  Receipt Date: 20210331
  Transmission Date: 20210419
  Serious: Yes (Hospitalization, Other)
  Sender: FDA-Public Use
  Company Number: US-SHIRE-US202001829

PATIENT
  Sex: Male

DRUGS (1)
  1. HUMAN NORMAL IMMUNOGLOBULIN; LIQUID [Suspect]
     Active Substance: HUMAN IMMUNOGLOBULIN G
     Indication: PRIMARY IMMUNODEFICIENCY SYNDROME
     Dosage: UNK
     Route: 058

REACTIONS (15)
  - Asthma [Recovering/Resolving]
  - Illness [Recovering/Resolving]
  - Dyspnoea [Unknown]
  - Arthralgia [Unknown]
  - Influenza [Unknown]
  - Infusion site pain [Unknown]
  - Cystitis [Recovering/Resolving]
  - Oesophageal polyp [Recovering/Resolving]
  - Oesophageal disorder [Recovering/Resolving]
  - Wheezing [Unknown]
  - Fall [Unknown]
  - Pneumonia [Unknown]
  - Gastrooesophageal reflux disease [Recovering/Resolving]
  - Chest discomfort [Unknown]
  - Rhinovirus infection [Unknown]
